FAERS Safety Report 5847802-2 (Version None)
Quarter: 2008Q3

REPORT INFORMATION
  Report Type: 
  Country: None (occurrence: None)
  Receive Date: 20080814
  Receipt Date: 20080730
  Transmission Date: 20090109
  Serious: Yes (Other)
  Sender: FDA-Public Use
  Company Number: 19917

PATIENT
  Age: 64 Year
  Sex: Male
  Weight: 118.9 kg

DRUGS (2)
  1. PACLITAXEL [Suspect]
     Indication: BLADDER CANCER
     Dosage: 348 MG DAILY IV
     Route: 042
     Dates: start: 20080328
  2. PACLITAXEL [Suspect]

REACTIONS (4)
  - ARTHRALGIA [None]
  - GROIN PAIN [None]
  - LUNG DISORDER [None]
  - PAIN [None]
